FAERS Safety Report 7992424-0 (Version None)
Quarter: 2011Q4

REPORT INFORMATION
  Report Type: 
  Country: None (occurrence: None)
  Receive Date: 20111219
  Receipt Date: 20110915
  Transmission Date: 20120403
  Serious: No
  Sender: FDA-Public Use
  Company Number: US-ASTRAZENECA-2011SE55692

PATIENT
  Sex: Male
  Weight: 77.1 kg

DRUGS (4)
  1. CRESTOR [Suspect]
     Indication: BLOOD CHOLESTEROL INCREASED
     Route: 048
     Dates: start: 20090101
  2. TRILIPIX [Concomitant]
  3. LOPRESSOR [Concomitant]
  4. ZETIA [Concomitant]

REACTIONS (2)
  - HYPERSENSITIVITY [None]
  - COUGH [None]
